FAERS Safety Report 23820405 (Version 1)
Quarter: 2024Q2

REPORT INFORMATION
  Report Type: Spontaneous
  Country: US (occurrence: US)
  Receive Date: 20240506
  Receipt Date: 20240506
  Transmission Date: 20240716
  Serious: Yes (Other)
  Sender: FDA-Public Use
  Company Number: US-AUROBINDO-AUR-APL-2024-020513

PATIENT
  Age: 6 Year
  Sex: Female

DRUGS (6)
  1. DEXAMETHASONE [Interacting]
     Active Substance: DEXAMETHASONE
     Indication: Adrenal gland cancer
     Dosage: 5 MG/M2/DAY (245 MG/M2 /DAY DOSE EQUIVALENT TO HYDROCORTISONE)
     Route: 065
  2. MITOTANE [Interacting]
     Active Substance: MITOTANE
     Indication: Adrenal gland cancer
     Dosage: UNK
     Route: 065
  3. CISPLATIN [Concomitant]
     Active Substance: CISPLATIN
     Indication: Adrenal gland cancer
     Dosage: UNK
     Route: 065
  4. DOXORUBICIN [Concomitant]
     Active Substance: DOXORUBICIN
     Indication: Adrenal gland cancer
     Dosage: UNK
     Route: 065
  5. ETOPOSIDE [Concomitant]
     Active Substance: ETOPOSIDE
     Indication: Adrenal gland cancer
     Dosage: UNK
     Route: 065
  6. HYDROCORTISONE [Concomitant]
     Active Substance: HYDROCORTISONE
     Indication: Adrenal gland cancer
     Dosage: 18  MG/ M2 /DAY
     Route: 065

REACTIONS (5)
  - Adrenocortical insufficiency acute [Unknown]
  - Hypotension [Unknown]
  - Nausea [Unknown]
  - Vomiting [Unknown]
  - Drug interaction [Unknown]
